FAERS Safety Report 25482682 (Version 1)
Quarter: 2025Q2

REPORT INFORMATION
  Report Type: Spontaneous
  Country: DE (occurrence: DE)
  Receive Date: 20250626
  Receipt Date: 20250626
  Transmission Date: 20250717
  Serious: Yes (Hospitalization)
  Sender: MYLAN
  Company Number: DE-MYLANLABS-2025M1052489

PATIENT
  Age: 19 Year
  Sex: Female

DRUGS (4)
  1. BROMOCRIPTINE [Suspect]
     Active Substance: BROMOCRIPTINE
     Indication: Prolactin-producing pituitary tumour
  2. CABERGOLINE [Suspect]
     Active Substance: CABERGOLINE
     Indication: Prolactin-producing pituitary tumour
  3. CABERGOLINE [Suspect]
     Active Substance: CABERGOLINE
     Dosage: 0.25 MILLIGRAM, BIWEEKLY
  4. CABERGOLINE [Suspect]
     Active Substance: CABERGOLINE

REACTIONS (3)
  - Cerebrospinal fluid leakage [Recovered/Resolved]
  - Cerebrospinal fistula [Recovered/Resolved]
  - Maternal exposure during pregnancy [Unknown]
